FAERS Safety Report 4634371-8 (Version None)
Quarter: 2005Q2

REPORT INFORMATION
  Report Type: 
  Country: None (occurrence: None)
  Receive Date: 20050411
  Receipt Date: 20050329
  Transmission Date: 20051028
  Serious: Yes (Other)
  Sender: FDA-Public Use
  Company Number: 2005043948

PATIENT
  Age: 39 Year
  Sex: Female

DRUGS (9)
  1. HYSRON-H200             (MEDROXYPROGESTERONE ACETATE) [Suspect]
     Indication: BREAST CANCER
     Dosage: 800 MG (400 MG, BID), ORAL; 600 MG DAILY, ORAL
     Route: 048
     Dates: start: 20010105
  2. HYSRON-H200             (MEDROXYPROGESTERONE ACETATE) [Suspect]
     Indication: BREAST CANCER
     Dosage: 800 MG (400 MG, BID), ORAL; 600 MG DAILY, ORAL
     Route: 048
     Dates: start: 20041101
  3. SPIRONOLACTONE [Concomitant]
  4. PACLITAXEL [Concomitant]
  5. BUFFERIN [Concomitant]
  6. MITOMYCIN [Concomitant]
  7. FUTRAFUL          (TEGAFUR SODIUM) [Concomitant]
  8. EPIRUBICIN [Concomitant]
  9. METHOTREXATE [Concomitant]

REACTIONS (4)
  - CATARACT SUBCAPSULAR [None]
  - CONJUNCTIVITIS [None]
  - CUSHINGOID [None]
  - VISUAL ACUITY REDUCED [None]
